FAERS Safety Report 16568040 (Version 1)
Quarter: 2019Q3

REPORT INFORMATION
  Report Type: Spontaneous
  Country: CA (occurrence: CA)
  Receive Date: 20190712
  Receipt Date: 20190712
  Transmission Date: 20191004
  Serious: Yes (Life-Threatening, Hospitalization, Other)
  Sender: FDA-Public Use
  Company Number: CA-PFIZER INC-2019238087

PATIENT
  Age: 24 Year
  Sex: Male

DRUGS (5)
  1. FLUCONAZOLE. [Concomitant]
     Active Substance: FLUCONAZOLE
  2. BESPONSA [Suspect]
     Active Substance: INOTUZUMAB OZOGAMICIN
     Dosage: 1.8 MG/M2, UNK
     Dates: start: 20190227, end: 20190227
  3. BESPONSA [Suspect]
     Active Substance: INOTUZUMAB OZOGAMICIN
     Dosage: 1.8 MG/M2, UNK
     Dates: start: 20190220, end: 20190220
  4. BESPONSA [Suspect]
     Active Substance: INOTUZUMAB OZOGAMICIN
     Indication: B PRECURSOR TYPE ACUTE LEUKAEMIA
     Dosage: 1.8 MG/M2, UNK
     Dates: start: 20190213, end: 20190213
  5. TACROLIMUS. [Concomitant]
     Active Substance: TACROLIMUS

REACTIONS (20)
  - Hepatic failure [Recovered/Resolved]
  - Multiple organ dysfunction syndrome [Unknown]
  - Jaundice [Unknown]
  - Weight increased [Unknown]
  - Cardiovascular disorder [Unknown]
  - Hepatomegaly [Unknown]
  - Venoocclusive liver disease [Recovering/Resolving]
  - Respiratory distress [Unknown]
  - Blood bilirubin increased [Unknown]
  - Gallbladder disorder [Unknown]
  - Blood creatinine increased [Unknown]
  - Renal failure [Unknown]
  - Abdominal pain [Unknown]
  - Portal venous system anomaly [Unknown]
  - Oedema peripheral [Unknown]
  - Thrombocytopenia [Unknown]
  - Ascites [Unknown]
  - Abdominal distension [Unknown]
  - Pleural effusion [Unknown]
  - Alanine aminotransferase increased [Unknown]

NARRATIVE: CASE EVENT DATE: 20190426
